FAERS Safety Report 4519802-6 (Version None)
Quarter: 2004Q4

REPORT INFORMATION
  Report Type: 
  Country: None (occurrence: None)
  Receive Date: 20041202
  Receipt Date: 20041202
  Transmission Date: 20050328
  Serious: Yes (Hospitalization, Disabling)
  Sender: FDA-Public Use
  Company Number: None

PATIENT
  Age: 42 Year
  Sex: Male
  Weight: 74.8435 kg

DRUGS (7)
  1. AMITRIPTYLINE TABLETS 25 MG [Suspect]
     Indication: BLADDER DISORDER
     Dosage: 1 TABLET AT NIGHT DAILY
     Dates: end: 20021004
  2. AMITRIPTYLINE TABLETS 25 MG [Suspect]
     Indication: OFF LABEL USE
     Dosage: 1 TABLET AT NIGHT DAILY
     Dates: end: 20021004
  3. AMITRIPTYLINE TABLETS 25 MG [Suspect]
     Indication: PROSTATIC DISORDER
     Dosage: 1 TABLET AT NIGHT DAILY
     Dates: end: 20021004
  4. AMITRIPTYLINE TABLETS 25 MG [Suspect]
     Indication: URINARY TRACT DISORDER
     Dosage: 1 TABLET AT NIGHT DAILY
     Dates: end: 20021004
  5. ALLOPURINOL [Concomitant]
  6. LEVAQUIN [Concomitant]
  7. CELEBREX [Concomitant]

REACTIONS (16)
  - ABNORMAL BEHAVIOUR [None]
  - AMNESIA [None]
  - ANGER [None]
  - ASTHENIA [None]
  - CRYING [None]
  - DEPRESSION [None]
  - EMOTIONAL DISORDER [None]
  - HALLUCINATIONS, MIXED [None]
  - HEPATIC LESION [None]
  - IMPRISONMENT [None]
  - LIVER ABSCESS [None]
  - PAIN [None]
  - PHYSICAL ASSAULT [None]
  - PSYCHOTIC DISORDER [None]
  - SUICIDE ATTEMPT [None]
  - THINKING ABNORMAL [None]
